FAERS Safety Report 6809873-6 (Version None)
Quarter: 2010Q2

REPORT INFORMATION
  Report Type: 
  Country: None (occurrence: None)
  Receive Date: 20100625
  Receipt Date: 20100616
  Transmission Date: 20101027
  Serious: Yes (Hospitalization, Other)
  Sender: FDA-Public Use
  Company Number: 2010SUS002296

PATIENT
  Age: 56 Year
  Sex: Male

DRUGS (4)
  1. PROGRAF [Suspect]
     Indication: RENAL TRANSPLANT
     Dosage: 1.5 MG, BID
  2. AMBISOME [Suspect]
     Indication: EVIDENCE BASED TREATMENT
     Dosage: 5 MG/KG, /D
  3. MYCOPHENOLATE MOFETIL [Suspect]
     Indication: RENAL TRANSPLANT
     Dosage: 750 MG, BID
  4. PREDNISONE TAB [Suspect]
     Indication: RENAL TRANSPLANT
     Dosage: 5 MG, UID/QD, 10 MG, UID/QD

REACTIONS (19)
  - ACUTE RESPIRATORY DISTRESS SYNDROME [None]
  - BLASTOMYCOSIS [None]
  - COMPLICATIONS OF TRANSPLANTED KIDNEY [None]
  - DECREASED APPETITE [None]
  - DIARRHOEA [None]
  - GENERAL PHYSICAL HEALTH DETERIORATION [None]
  - HEADACHE [None]
  - HYPOXIA [None]
  - MENINGITIS [None]
  - MYALGIA [None]
  - NERVOUS SYSTEM DISORDER [None]
  - NORMOCHROMIC NORMOCYTIC ANAEMIA [None]
  - RASH PAPULAR [None]
  - RENAL IMPAIRMENT [None]
  - RESPIRATORY FAILURE [None]
  - SCAB [None]
  - SEPTIC SHOCK [None]
  - SKIN LESION [None]
  - WEIGHT DECREASED [None]
